FAERS Safety Report 20552831 (Version 1)
Quarter: 2022Q1

REPORT INFORMATION
  Report Type: Spontaneous
  Country: US (occurrence: None)
  Receive Date: 20220304
  Receipt Date: 20220304
  Transmission Date: 20220423
  Serious: Yes (Hospitalization)
  Sender: FDA-Public Use
  Company Number: None

PATIENT
  Age: 73 Year
  Sex: Male
  Weight: 73.5 kg

DRUGS (2)
  1. GEMCITABINE HYDROCHLORIDE [Suspect]
     Active Substance: GEMCITABINE HYDROCHLORIDE
     Dates: end: 20220214
  2. PACLITAXEL [Suspect]
     Active Substance: PACLITAXEL
     Dates: end: 20220214

REACTIONS (7)
  - Pancreatitis [None]
  - Decreased appetite [None]
  - Dyspnoea exertional [None]
  - Fall [None]
  - Asthenia [None]
  - Abdominal pain upper [None]
  - Constipation [None]

NARRATIVE: CASE EVENT DATE: 20220227
